FAERS Safety Report 4516157-8 (Version None)
Quarter: 2004Q4

REPORT INFORMATION
  Report Type: 
  Country: None (occurrence: None)
  Receive Date: 20041129
  Receipt Date: 20041119
  Transmission Date: 20050328
  Serious: Yes (Hospitalization, Other)
  Sender: FDA-Public Use
  Company Number: 2001-04-1076

PATIENT
  Age: 30 Year
  Sex: Male

DRUGS (5)
  1. INTRON A [Suspect]
     Indication: CHRONIC MYELOID LEUKAEMIA
     Dosage: 10 MU/DAY INTRAMUSCULAR
     Route: 030
     Dates: start: 20001117, end: 20010403
  2. HYDROXYUREA [Suspect]
     Indication: CHRONIC MYELOID LEUKAEMIA
     Dosage: SEE IMAGE
     Route: 048
     Dates: start: 20001002, end: 20001016
  3. HYDROXYUREA [Suspect]
     Indication: CHRONIC MYELOID LEUKAEMIA
     Dosage: SEE IMAGE
     Route: 048
     Dates: start: 20001117, end: 20010406
  4. INTRON A [Suspect]
     Indication: CHRONIC MYELOID LEUKAEMIA
     Dosage: 6 MU
     Dates: start: 20001002
  5. FUROSEMIDE [Concomitant]

REACTIONS (9)
  - HAEMODIALYSIS [None]
  - HAEMOLYTIC URAEMIC SYNDROME [None]
  - MICROANGIOPATHY [None]
  - NEPHROTIC SYNDROME [None]
  - PERICARDIAL EFFUSION [None]
  - RENAL FAILURE ACUTE [None]
  - RENAL FAILURE CHRONIC [None]
  - THERAPY NON-RESPONDER [None]
  - THROMBOCYTOPENIA [None]
